FAERS Safety Report 8257870-9 (Version None)
Quarter: 2012Q1

REPORT INFORMATION
  Report Type: 
  Country: None (occurrence: None)
  Receive Date: 20111211
  Receipt Date: 20111025
  Transmission Date: 20120608
  Serious: No
  Sender: FDA-Public Use
  Company Number: 201110045

PATIENT
  Age: 83 Year
  Sex: Male

DRUGS (4)
  1. HYDROCORTONE [Concomitant]
  2. TOPROL-XL [Concomitant]
  3. XIAFLEX (CLOSTRIDIAL COLLAGENASE) [Suspect]
     Indication: DUPUYTREN'S CONTRACTURE
     Dosage: 0.58 MG, 1 IN 1 D, INTRALESIONAL
     Route: 026
     Dates: start: 20111010, end: 20111010
  4. KETOCONAZOLE [Concomitant]

REACTIONS (2)
  - LYMPHANGITIS [None]
  - ECCHYMOSIS [None]
